FAERS Safety Report 5085721-2 (Version None)
Quarter: 2006Q3

REPORT INFORMATION
  Report Type: 
  Country: None (occurrence: None)
  Receive Date: 20060822
  Receipt Date: 20060811
  Transmission Date: 20061208
  Serious: Yes (Hospitalization)
  Sender: FDA-Public Use
  Company Number: FR-JNJFOC-20060802783

PATIENT
  Age: 64 Year
  Sex: Female

DRUGS (4)
  1. RISPERDAL [Suspect]
     Indication: DRUG USE FOR UNKNOWN INDICATION
     Route: 048
  2. TERCIAN [Suspect]
     Indication: DRUG USE FOR UNKNOWN INDICATION
     Route: 048
  3. VALIUM [Suspect]
     Indication: DRUG USE FOR UNKNOWN INDICATION
     Route: 048
  4. TERALITHE [Suspect]
     Indication: BIPOLAR DISORDER
     Route: 048

REACTIONS (4)
  - HYPERCALCAEMIA [None]
  - HYPERPARATHYROIDISM [None]
  - MANIA [None]
  - PARATHYROID TUMOUR BENIGN [None]
